FAERS Safety Report 16957837 (Version 1)
Quarter: 2019Q4

REPORT INFORMATION
  Report Type: Spontaneous
  Country: US (occurrence: US)
  Receive Date: 20191024
  Receipt Date: 20191024
  Transmission Date: 20200122
  Serious: No
  Sender: FDA-Public Use
  Company Number: US-SA-2019SA294298

PATIENT
  Sex: Female

DRUGS (1)
  1. DUPIXENT [Suspect]
     Active Substance: DUPILUMAB
     Indication: DERMATITIS ATOPIC
     Dosage: 300 MG, QOW
     Route: 058
     Dates: start: 20190919

REACTIONS (9)
  - Oral herpes [Unknown]
  - Skin swelling [Unknown]
  - Dry eye [Unknown]
  - Blood pressure increased [Unknown]
  - Decreased appetite [Unknown]
  - Eye pruritus [Unknown]
  - Weight increased [Unknown]
  - Eye irritation [Unknown]
  - Alopecia [Unknown]
